FAERS Safety Report 8573012-4 (Version None)
Quarter: 2012Q3

REPORT INFORMATION
  Report Type: 
  Country: None (occurrence: None)
  Receive Date: 20120806
  Receipt Date: 20120730
  Transmission Date: 20120928
  Serious: Yes (Other)
  Sender: FDA-Public Use
  Company Number: BR-PFIZER INC-2012185638

PATIENT
  Age: 25 Year
  Sex: Female
  Weight: 63 kg

DRUGS (5)
  1. TRAMADOL HYDROCHLORIDE [Concomitant]
     Indication: PAIN
     Dosage: UNK, 2X/DAY
     Dates: start: 20120430, end: 20120730
  2. CELEBREX [Concomitant]
     Indication: INFLAMMATION
     Dosage: UNK, 1X/DAY
     Dates: start: 20120630, end: 20120730
  3. LYRICA [Suspect]
     Dosage: UNK
     Route: 048
     Dates: start: 20120101
  4. LYRICA [Suspect]
     Dosage: 75 MG, 2X/DAY
     Route: 048
     Dates: start: 20100930
  5. MORPHINE [Concomitant]
     Dosage: UNK

REACTIONS (7)
  - WALKING DISABILITY [None]
  - OEDEMA [None]
  - PAIN IN EXTREMITY [None]
  - MOVEMENT DISORDER [None]
  - INTERVERTEBRAL DISC DEGENERATION [None]
  - PAIN [None]
  - INTERVERTEBRAL DISC PROTRUSION [None]
